FAERS Safety Report 6254696-2 (Version None)
Quarter: 2009Q3

REPORT INFORMATION
  Report Type: 
  Country: None (occurrence: None)
  Receive Date: 20090702
  Receipt Date: 20090623
  Transmission Date: 20100115
  Serious: Yes (Hospitalization)
  Sender: FDA-Public Use
  Company Number: US-PFIZER INC-2009198759

PATIENT
  Sex: Male
  Weight: 90.703 kg

DRUGS (8)
  1. SUNITINIB MALATE [Suspect]
     Indication: NEUROENDOCRINE TUMOUR
     Dosage: 37.5 MG, 1X/DAY, DAILY X 2WEEKS
     Route: 048
     Dates: start: 20061114, end: 20090403
  2. OMEPRAZOLE [Concomitant]
     Dosage: UNK
     Route: 048
     Dates: start: 20070807
  3. INDERAL [Concomitant]
     Dosage: UNK
     Route: 048
     Dates: start: 20040101
  4. BENAZEPRIL [Concomitant]
     Dosage: UNK
     Route: 048
     Dates: start: 20040101
  5. ZYRTEC [Concomitant]
     Dosage: UNK
     Route: 048
     Dates: start: 20061107
  6. SYNTHROID [Concomitant]
     Dosage: UNK
     Route: 048
     Dates: start: 20090302
  7. REGLAN [Concomitant]
     Dosage: UNK
     Route: 048
     Dates: start: 20060916
  8. PROMETHAZINE [Concomitant]
     Dosage: UNK
     Route: 048
     Dates: start: 20060407

REACTIONS (1)
  - RENAL FAILURE ACUTE [None]
